FAERS Safety Report 5742594-X (Version None)
Quarter: 2008Q2

REPORT INFORMATION
  Report Type: 
  Country: None (occurrence: None)
  Receive Date: 20080515
  Receipt Date: 20080515
  Transmission Date: 20081010
  Serious: No
  Sender: FDA-Public Use
  Company Number: None

PATIENT
  Sex: Female
  Weight: 66.6788 kg

DRUGS (1)
  1. EVISTA RALOVIFENE HCI ELI LILLY + CO [Suspect]
     Indication: OSTEOPOROSIS
     Dosage: 60 MG       1/DAY
     Dates: start: 20040701

REACTIONS (1)
  - VITREOUS FLOATERS [None]
